FAERS Safety Report 12556280 (Version 1)
Quarter: 2016Q3

REPORT INFORMATION
  Report Type: Spontaneous
  Country: US (occurrence: None)
  Receive Date: 20160713
  Receipt Date: 20160713
  Transmission Date: 20161109
  Serious: No
  Sender: FDA-Public Use
  Company Number: None

PATIENT
  Age: 84 Year
  Sex: Female
  Weight: 64.41 kg

DRUGS (6)
  1. SIMBRINZA [Suspect]
     Active Substance: BRIMONIDINE TARTRATE\BRINZOLAMIDE
     Indication: OPEN ANGLE GLAUCOMA
     Dosage: 1 DROP INTO BOTH EYES TWICE DAILY AS A DIRECTED
     Dates: start: 20150620, end: 20160101
  2. LATANOPROST. [Concomitant]
     Active Substance: LATANOPROST
  3. DORZOLAMIDE [Concomitant]
     Active Substance: DORZOLAMIDE
  4. TIMOLOL. [Concomitant]
     Active Substance: TIMOLOL
  5. TIMOLOL. [Concomitant]
     Active Substance: TIMOLOL
  6. GENERIC COSOPT OCUMETER PLUS OPH [Concomitant]

REACTIONS (1)
  - Product quality issue [None]

NARRATIVE: CASE EVENT DATE: 20150620
